FAERS Safety Report 17156648 (Version 1)
Quarter: 2019Q4

REPORT INFORMATION
  Report Type: Spontaneous
  Country: DE (occurrence: DE)
  Receive Date: 20191216
  Receipt Date: 20191216
  Transmission Date: 20200122
  Serious: Yes (Other)
  Sender: FDA-Public Use
  Company Number: DE-TEVA-2019-DE-1151123

PATIENT
  Age: 71 Year
  Sex: Male

DRUGS (5)
  1. XIPAMID [Suspect]
     Active Substance: XIPAMIDE
     Route: 048
  2. ATORVASTATIN [Concomitant]
     Active Substance: ATORVASTATIN
     Route: 048
  3. AMLODIPINE [Concomitant]
     Active Substance: AMLODIPINE BESYLATE
     Route: 048
  4. VALSARTAN. [Suspect]
     Active Substance: VALSARTAN
     Indication: HYPERTENSION
     Dosage: 320 MG
     Route: 048
  5. NOVOTHYRAL [Concomitant]
     Active Substance: LEVOTHYROXINE SODIUM\LIOTHYRONINE SODIUM
     Route: 048

REACTIONS (3)
  - Visual acuity reduced [Recovered/Resolved]
  - Pain [Recovered/Resolved]
  - Choroidal detachment [Recovered/Resolved]

NARRATIVE: CASE EVENT DATE: 20190912
